FAERS Safety Report 20847994 (Version 1)
Quarter: 2022Q2

REPORT INFORMATION
  Report Type: Spontaneous
  Country: FR (occurrence: None)
  Receive Date: 20220519
  Receipt Date: 20220519
  Transmission Date: 20220720
  Serious: Yes (Hospitalization, Other)
  Sender: FDA-Public Use
  Company Number: None

PATIENT
  Age: 62 Year
  Sex: Female
  Weight: 45 kg

DRUGS (16)
  1. ACETAMINOPHEN [Suspect]
     Active Substance: ACETAMINOPHEN
     Indication: Product used for unknown indication
     Route: 065
  2. AMITRIPTYLINE HYDROCHLORIDE [Suspect]
     Active Substance: AMITRIPTYLINE HYDROCHLORIDE
     Indication: Product used for unknown indication
     Dosage: 25 MILLIGRAM DAILY
     Route: 065
  3. GABAPENTIN [Suspect]
     Active Substance: GABAPENTIN
     Indication: Neuropathic pruritus
     Dosage: 100 MILLIGRAM DAILY
     Dates: start: 202201
  4. DIFELIKEFALIN [Suspect]
     Active Substance: DIFELIKEFALIN
     Indication: Chronic kidney disease
  5. DIFELIKEFALIN [Suspect]
     Active Substance: DIFELIKEFALIN
     Indication: Pruritus
     Route: 065
     Dates: start: 20220207, end: 20220221
  6. DOXAZOSIN [Suspect]
     Active Substance: DOXAZOSIN MESYLATE
     Indication: Product used for unknown indication
     Dosage: 1 DOSE
  7. METHOXY POLYETHYLENE GLYCOL-EPOETIN BETA [Suspect]
     Active Substance: METHOXY POLYETHYLENE GLYCOL-EPOETIN BETA
     Indication: Product used for unknown indication
     Dosage: 1 DOSE
     Route: 065
     Dates: start: 20220114
  8. ATORVASTATIN CALCIUM [Concomitant]
     Active Substance: ATORVASTATIN CALCIUM
     Indication: Product used for unknown indication
  9. SODIUM BICARBONATE [Concomitant]
     Active Substance: SODIUM BICARBONATE
     Indication: Product used for unknown indication
  10. SODIUM POLYSTYRENE SULFONATE [Concomitant]
     Active Substance: SODIUM POLYSTYRENE SULFONATE
     Indication: Product used for unknown indication
  11. NICARDIPINE HYDROCHLORIDE [Concomitant]
     Active Substance: NICARDIPINE HYDROCHLORIDE
     Indication: Product used for unknown indication
  12. RILMENIDINE [Concomitant]
     Active Substance: RILMENIDINE
     Indication: Pruritus
     Route: 065
  13. VALSARTAN [Concomitant]
     Active Substance: VALSARTAN
     Indication: Chronic kidney disease
     Route: 065
  14. BISOPROLOL [Concomitant]
     Active Substance: BISOPROLOL
     Indication: Product used for unknown indication
     Route: 065
  15. SPIRONOLACTONE [Concomitant]
     Active Substance: SPIRONOLACTONE
     Indication: Product used for unknown indication
  16. CLOPIDOGREL BISULFATE [Concomitant]
     Active Substance: CLOPIDOGREL BISULFATE
     Indication: Product used for unknown indication

REACTIONS (1)
  - Drug reaction with eosinophilia and systemic symptoms [Not Recovered/Not Resolved]

NARRATIVE: CASE EVENT DATE: 20220221
